FAERS Safety Report 10299194 (Version 1)
Quarter: 2014Q3

REPORT INFORMATION
  Report Type: Spontaneous
  Country: FR (occurrence: FR)
  Receive Date: 20140711
  Receipt Date: 20140711
  Transmission Date: 20150326
  Serious: Yes (Hospitalization)
  Sender: FDA-Public Use
  Company Number: FR-BRISTOL-MYERS SQUIBB COMPANY-21175468

PATIENT
  Age: 87 Year
  Sex: Male

DRUGS (8)
  1. BETASERC [Concomitant]
     Active Substance: BETAHISTINE
  2. SERESTA [Concomitant]
     Active Substance: OXAZEPAM
  3. COUMADINE [Suspect]
     Active Substance: WARFARIN SODIUM
     Route: 048
     Dates: start: 20140310, end: 20140321
  4. KARDEGIC [Suspect]
     Active Substance: ASPIRIN LYSINE
     Route: 048
     Dates: start: 20140305, end: 20140317
  5. DOLIPRANE [Concomitant]
     Active Substance: ACETAMINOPHEN
  6. CALCIPARINE [Concomitant]
     Active Substance: HEPARIN CALCIUM
     Indication: PULMONARY EMBOLISM
     Dates: start: 20140307
  7. FUROSEMIDE. [Concomitant]
     Active Substance: FUROSEMIDE
  8. ZOFENIL [Concomitant]
     Active Substance: ZOFENOPRIL

REACTIONS (4)
  - Melaena [Recovered/Resolved]
  - Haematoma [Recovered/Resolved]
  - International normalised ratio increased [Recovered/Resolved]
  - Anaemia [Recovered/Resolved]

NARRATIVE: CASE EVENT DATE: 20140321
